FAERS Safety Report 9635711 (Version 2)
Quarter: 2013Q4

REPORT INFORMATION
  Report Type: Report from Study
  Country: US (occurrence: US)
  Receive Date: 20131021
  Receipt Date: 20131028
  Transmission Date: 20140711
  Serious: Yes (Hospitalization)
  Sender: FDA-Public Use
  Company Number: US-GLAXOSMITHKLINE-B0931989A

PATIENT
  Age: 59 Year
  Sex: Female
  Weight: 65.5 kg

DRUGS (6)
  1. BUPROPION HCL [Suspect]
     Indication: EX-TOBACCO USER
     Dosage: 150MG TWICE PER DAY
     Route: 048
     Dates: start: 20130917
  2. EFFEXOR [Suspect]
     Indication: PRODUCT USED FOR UNKNOWN INDICATION
     Dosage: 300MG PER DAY
     Route: 048
     Dates: start: 20081001
  3. SEROQUEL [Concomitant]
     Dates: start: 20081001
  4. TEGRETOL [Concomitant]
     Dates: start: 20081001
  5. ACETAMINOPHEN + CODEINE [Concomitant]
     Dates: start: 20130914, end: 20130916
  6. IBUPROFEN [Concomitant]
     Dates: start: 20130912

REACTIONS (2)
  - Mental disorder [Unknown]
  - Psychiatric symptom [Unknown]
